FAERS Safety Report 9966619 (Version 2)
Quarter: 2014Q1

REPORT INFORMATION
  Report Type: Report from Study
  Country: US (occurrence: US)
  Receive Date: 20140305
  Receipt Date: 20140305
  Transmission Date: 20141002
  Serious: Yes (Other)
  Sender: FDA-Public Use
  Company Number: US-ABBVIE-13P-163-1079924-00

PATIENT
  Sex: Female
  Weight: 79 kg

DRUGS (9)
  1. HUMIRA [Suspect]
     Indication: RHEUMATOID ARTHRITIS
     Dates: start: 2012
  2. CYMBALTA [Concomitant]
     Indication: PAIN
  3. PLAQUENIL [Concomitant]
     Indication: RHEUMATOID ARTHRITIS
  4. LEUCOVORIN [Concomitant]
     Indication: RHEUMATOID ARTHRITIS
  5. NORVASC [Concomitant]
     Indication: HYPERTENSION
  6. TRAZODONE [Concomitant]
     Indication: DEPRESSION
  7. CELEXA [Concomitant]
     Indication: DEPRESSION
  8. METHOTREXATE [Concomitant]
     Indication: RHEUMATOID ARTHRITIS
  9. OPANA [Concomitant]
     Indication: PAIN

REACTIONS (2)
  - Pain [Recovering/Resolving]
  - Rheumatoid arthritis [Recovering/Resolving]
